FAERS Safety Report 7675441-X (Version None)
Quarter: 2011Q3

REPORT INFORMATION
  Report Type: 
  Country: None (occurrence: None)
  Receive Date: 20110810
  Receipt Date: 20110805
  Transmission Date: 20111222
  Serious: Yes (Other)
  Sender: FDA-Public Use
  Company Number: US-TEVA-289983USA

PATIENT
  Sex: Female

DRUGS (6)
  1. CORTICOTROPIN [Concomitant]
     Route: 058
  2. FOLIC ACID [Concomitant]
  3. TIZANIDINE HYDROCHLORIDE [Concomitant]
  4. MULTI-VITAMINS [Concomitant]
     Dosage: OCCASIONALLY
  5. COPAXONE [Suspect]
     Indication: MULTIPLE SCLEROSIS
     Route: 058
     Dates: start: 20110709
  6. METFORMIN HCL [Concomitant]
     Dosage: 2000 MILLIGRAM;

REACTIONS (3)
  - LARYNGOSPASM [None]
  - DYSPNOEA [None]
  - STRIDOR [None]
